FAERS Safety Report 10581471 (Version 1)
Quarter: 2014Q4

REPORT INFORMATION
  Report Type: Spontaneous
  Country: BE (occurrence: None)
  Receive Date: 20141110
  Receipt Date: 20141110
  Transmission Date: 20150529
  Serious: Yes (Death)
  Sender: FDA-Public Use
  Company Number: NSR_01658_2014

PATIENT
  Age: 17 Year
  Sex: Male

DRUGS (2)
  1. TRAMADOL (TRAMADOL) [Suspect]
     Active Substance: TRAMADOL
     Indication: PRODUCT USED FOR UNKNOWN INDICATION
     Dosage: NOT THE PRESCRIBED AMOUNT
  2. CETIRIZINE [Concomitant]
     Active Substance: CETIRIZINE HYDROCHLORIDE

REACTIONS (7)
  - Foaming at mouth [None]
  - Acute pulmonary oedema [None]
  - Completed suicide [None]
  - Respiratory depression [None]
  - Intentional overdose [None]
  - Toxicity to various agents [None]
  - Drug screen positive [None]
